FAERS Safety Report 5563631-1 (Version None)
Quarter: 2007Q4

REPORT INFORMATION
  Report Type: 
  Country: None (occurrence: None)
  Receive Date: 20071217
  Receipt Date: 20071206
  Transmission Date: 20080405
  Serious: Yes (Other)
  Sender: FDA-Public Use
  Company Number: US-ELI_LILLY_AND_COMPANY-US200707006624

PATIENT
  Sex: Female
  Weight: 59.863 kg

DRUGS (5)
  1. EVISTA [Suspect]
     Indication: OSTEOPOROSIS PROPHYLAXIS
     Dosage: 60 MG, UNK
     Route: 048
     Dates: end: 20070713
  2. EVISTA [Suspect]
  3. FLONASE [Concomitant]
     Dosage: UNK, AS NEEDED
  4. VALTREX [Concomitant]
  5. ADVIL                              /00109201/ [Concomitant]

REACTIONS (2)
  - ALANINE AMINOTRANSFERASE INCREASED [None]
  - ASPARTATE AMINOTRANSFERASE INCREASED [None]
